FAERS Safety Report 9863499 (Version 5)
Quarter: 2020Q3

REPORT INFORMATION
  Report Type: Spontaneous
  Country: SE (occurrence: SE)
  Receive Date: 20140203
  Receipt Date: 20200820
  Transmission Date: 20201103
  Serious: Yes (Other)
  Sender: FDA-Public Use
  Company Number: SE-PFIZER INC-2014027773

PATIENT
  Age: 45 Year
  Sex: Female

DRUGS (1)
  1. DEPO?PROVERA [Suspect]
     Active Substance: MEDROXYPROGESTERONE ACETATE
     Indication: OVARIAN CYST
     Dosage: 150 MG/ML, EVERY 3 MONTHS
     Route: 030
     Dates: start: 2005

REACTIONS (6)
  - Psoriatic arthropathy [Not Recovered/Not Resolved]
  - Therapeutic product effect incomplete [Unknown]
  - Arthralgia [Not Recovered/Not Resolved]
  - Infection [Unknown]
  - Night sweats [Not Recovered/Not Resolved]
  - Vulvovaginal candidiasis [Unknown]
